FAERS Safety Report 5464892-X (Version None)
Quarter: 2007Q3

REPORT INFORMATION
  Report Type: 
  Country: None (occurrence: None)
  Receive Date: 20070921
  Receipt Date: 20070910
  Transmission Date: 20080115
  Serious: Yes (Other)
  Sender: FDA-Public Use
  Company Number: US-PFIZER INC-2007076515

PATIENT
  Sex: Female
  Weight: 69.9 kg

DRUGS (3)
  1. CHANTIX [Suspect]
     Indication: SMOKING CESSATION THERAPY
     Route: 048
  2. ZANTAC [Concomitant]
     Route: 048
  3. CLIMARA [Concomitant]

REACTIONS (1)
  - HEPATIC ENZYME INCREASED [None]
